FAERS Safety Report 6845408-X (Version None)
Quarter: 2010Q3

REPORT INFORMATION
  Report Type: 
  Country: None (occurrence: None)
  Receive Date: 20100715
  Receipt Date: 20081219
  Transmission Date: 20110219
  Serious: No
  Sender: FDA-Public Use
  Company Number: US-PFIZER INC-2007067635

PATIENT
  Sex: Female
  Weight: 111 kg

DRUGS (7)
  1. CHANTIX [Suspect]
     Indication: SMOKING CESSATION THERAPY
     Dosage: 0.5 MG, 1X/DAY
     Dates: start: 20070806
  2. ABILIFY [Concomitant]
  3. DEPAKOTE [Concomitant]
  4. LISINOPRIL [Concomitant]
     Indication: HYPERTENSION
  5. METFORMIN [Concomitant]
  6. NOVOLIN [Concomitant]
  7. DIPHENHYDRAMINE HYDROCHLORIDE [Concomitant]

REACTIONS (3)
  - ABNORMAL DREAMS [None]
  - CONSTIPATION [None]
  - NAUSEA [None]
